FAERS Safety Report 10268929 (Version 2)
Quarter: 2015Q1

REPORT INFORMATION
  Report Type: Report from Study
  Country: FR (occurrence: FR)
  Receive Date: 20140630
  Receipt Date: 20150121
  Transmission Date: 20150720
  Serious: Yes (Hospitalization)
  Sender: FDA-Public Use
  Company Number: FR-BAYER-2014-092871

PATIENT
  Age: 68 Year
  Sex: Male
  Weight: 76 kg

DRUGS (4)
  1. REGORAFENIB [Suspect]
     Active Substance: REGORAFENIB
     Indication: HEPATOCELLULAR CARCINOMA
     Dosage: DAILY DOSE 160 MG
     Route: 048
     Dates: start: 20140612
  2. REGORAFENIB [Suspect]
     Active Substance: REGORAFENIB
     Indication: HEPATOCELLULAR CARCINOMA
     Dosage: DAILY DOSE 160 MG
     Route: 048
     Dates: start: 20140321, end: 20140410
  3. REGORAFENIB [Suspect]
     Active Substance: REGORAFENIB
     Indication: HEPATOCELLULAR CARCINOMA
     Dosage: DAILY DOSE 160 MG
     Route: 048
     Dates: start: 20140417, end: 20140507
  4. REGORAFENIB [Suspect]
     Active Substance: REGORAFENIB
     Indication: HEPATOCELLULAR CARCINOMA
     Dosage: DAILY DOSE 160 MG
     Route: 048
     Dates: start: 20140515, end: 20140521

REACTIONS (1)
  - Epilepsy [Recovered/Resolved]

NARRATIVE: CASE EVENT DATE: 20140614
